FAERS Safety Report 18508269 (Version 1)
Quarter: 2020Q4

REPORT INFORMATION
  Report Type: Spontaneous
  Country: US (occurrence: US)
  Receive Date: 20201116
  Receipt Date: 20201116
  Transmission Date: 20210114
  Serious: Yes (Hospitalization, Congenital Anomaly)
  Sender: FDA-Public Use
  Company Number: US-ACELLA PHARMACEUTICALS, LLC-2095964

PATIENT
  Age: 1 Day
  Sex: Male

DRUGS (5)
  1. BUPRENORPHINE. [Suspect]
     Active Substance: BUPRENORPHINE
  2. BENZODIAZEPINES- NOT SPECIFIED [Suspect]
     Active Substance: BENZODIAZEPINE
  3. HEROIN [Suspect]
     Active Substance: DIAMORPHINE
  4. OPIOIDS - NOT SPECIFIED [Suspect]
     Active Substance: UNSPECIFIED INGREDIENT
  5. GABAPENTIN. [Suspect]
     Active Substance: GABAPENTIN
     Indication: SUBSTANCE ABUSE

REACTIONS (4)
  - Facial wasting [Not Recovered/Not Resolved]
  - Developmental hip dysplasia [Not Recovered/Not Resolved]
  - Drug withdrawal syndrome neonatal [Recovering/Resolving]
  - Congenital multiplex arthrogryposis [Not Recovered/Not Resolved]
